FAERS Safety Report 18109040 (Version 6)
Quarter: 2021Q1

REPORT INFORMATION
  Report Type: Spontaneous
  Country: US (occurrence: US)
  Receive Date: 20200804
  Receipt Date: 20210319
  Transmission Date: 20210419
  Serious: No
  Sender: FDA-Public Use
  Company Number: US-PFIZER INC-2020294518

PATIENT
  Age: 63 Year
  Sex: Female
  Weight: 98.41 kg

DRUGS (2)
  1. IRON [Concomitant]
     Active Substance: IRON
     Indication: BLOOD IRON DECREASED
     Dosage: UNK, 1X/DAY (65MG IRON/325MG FERROUS SULFATE)
     Route: 048
     Dates: start: 202008
  2. XALKORI [Suspect]
     Active Substance: CRIZOTINIB
     Indication: LUNG CARCINOMA CELL TYPE UNSPECIFIED STAGE IV
     Dosage: 250 MG, 2X/DAY (TWO TIMES A DAY) (2 PILLS A DAY)
     Route: 048

REACTIONS (9)
  - Pain in extremity [Unknown]
  - Sciatic nerve injury [Unknown]
  - Muscle tightness [Unknown]
  - Synovial cyst [Unknown]
  - Oedema [Unknown]
  - Back disorder [Unknown]
  - Lymphoedema [Unknown]
  - Weight decreased [Unknown]
  - Amnesia [Unknown]

NARRATIVE: CASE EVENT DATE: 2020
